FAERS Safety Report 22024900 (Version 5)
Quarter: 2023Q2

REPORT INFORMATION
  Report Type: Report from Study
  Country: US (occurrence: US)
  Receive Date: 20230223
  Receipt Date: 20230505
  Transmission Date: 20230721
  Serious: Yes (Other)
  Sender: FDA-Public Use
  Company Number: US-GILEAD-2023-0617324

PATIENT
  Sex: Female

DRUGS (2)
  1. AMBRISENTAN [Suspect]
     Active Substance: AMBRISENTAN
     Indication: Pulmonary arterial hypertension
     Dosage: 10 MG, QD
     Route: 065
     Dates: start: 20191009
  2. AMBRISENTAN [Suspect]
     Active Substance: AMBRISENTAN
     Dosage: 10 MG
     Route: 065
     Dates: start: 20130409

REACTIONS (7)
  - Breast cancer metastatic [Unknown]
  - Neoplasm malignant [Unknown]
  - Chest pain [Unknown]
  - Pain [Unknown]
  - Fatigue [Unknown]
  - Palpitations [Unknown]
  - Dyspnoea [Unknown]
